FAERS Safety Report 5944616-X (Version None)
Quarter: 2008Q4

REPORT INFORMATION
  Report Type: 
  Country: None (occurrence: None)
  Receive Date: 20081107
  Receipt Date: 20081031
  Transmission Date: 20090506
  Serious: Yes (Hospitalization)
  Sender: FDA-Public Use
  Company Number: US-BAYER-200813950BCC

PATIENT
  Age: 16 Year
  Sex: Female
  Weight: 79 kg

DRUGS (2)
  1. MIDOL [Suspect]
     Indication: ANALGESIA
     Dosage: AS USED: 6-8 DF
     Route: 048
     Dates: start: 20080930, end: 20080101
  2. FEXOFENADINE [Concomitant]
     Dosage: TOTAL DAILY DOSE: 120 MG

REACTIONS (6)
  - ANALGESIC DRUG LEVEL INCREASED [None]
  - DIZZINESS [None]
  - HEART RATE INCREASED [None]
  - POLYURIA [None]
  - TREMOR [None]
  - VENTRICULAR EXTRASYSTOLES [None]
